FAERS Safety Report 9216442 (Version 1)
Quarter: 2013Q2

REPORT INFORMATION
  Report Type: Spontaneous
  Country: US (occurrence: US)
  Receive Date: 20130408
  Receipt Date: 20130408
  Transmission Date: 20140414
  Serious: Yes (Hospitalization)
  Sender: FDA-Public Use
  Company Number: US-SANOFI-AVENTIS-2013SA032995

PATIENT
  Age: 60 Year
  Sex: Female

DRUGS (1)
  1. LOVENOX [Suspect]
     Indication: DEEP VEIN THROMBOSIS
     Route: 065

REACTIONS (20)
  - Spontaneous haematoma [Recovering/Resolving]
  - Haematochezia [Recovering/Resolving]
  - Haematemesis [Recovering/Resolving]
  - Sinus tachycardia [Unknown]
  - Haemoglobin decreased [Unknown]
  - Small intestinal obstruction [Recovering/Resolving]
  - Vomiting [Recovering/Resolving]
  - Blood bicarbonate decreased [Recovering/Resolving]
  - Abdominal pain upper [Recovering/Resolving]
  - Abdominal tenderness [Recovering/Resolving]
  - Bowel movement irregularity [Recovered/Resolved]
  - Hypokalaemia [Recovering/Resolving]
  - Blood creatinine increased [Recovering/Resolving]
  - Internal hernia [Recovering/Resolving]
  - Intestinal dilatation [Recovering/Resolving]
  - Small intestinal perforation [Recovering/Resolving]
  - Abdominal adhesions [Recovering/Resolving]
  - Intestinal ischaemia [Recovering/Resolving]
  - Pneumatosis [Recovering/Resolving]
  - Gastrointestinal necrosis [Recovering/Resolving]
